FAERS Safety Report 6050332-9 (Version None)
Quarter: 2009Q1

REPORT INFORMATION
  Report Type: 
  Country: None (occurrence: None)
  Receive Date: 20090126
  Receipt Date: 20090115
  Transmission Date: 20090719
  Serious: Yes (Death)
  Sender: FDA-Public Use
  Company Number: US-MONARCH-K200900039

PATIENT
  Age: 18 Year
  Sex: Female

DRUGS (13)
  1. SYNERCID [Suspect]
     Indication: SEPSIS
     Dosage: 7.5 MG/KG, TID
     Route: 042
     Dates: start: 20080618, end: 20080626
  2. RITUXIMAB [Suspect]
     Indication: LYMPHOMA
     Dosage: 400 MG, SOLUTION
     Route: 042
     Dates: start: 20080312, end: 20080312
  3. RITUXIMAB [Suspect]
     Dosage: 400 MG SOLUTION
     Route: 042
     Dates: start: 20080325, end: 20080325
  4. RITUXIMAB [Suspect]
     Dosage: 400 MG SOLUTION
     Route: 042
     Dates: start: 20080401, end: 20080401
  5. RITUXIMAB [Suspect]
     Dosage: 400 MG SOLUTION
     Route: 042
     Dates: start: 20080415, end: 20080415
  6. RITUXIMAB [Suspect]
     Dosage: 400 MG SOLUTION
     Route: 042
     Dates: start: 20080430, end: 20080430
  7. ENDOXAN                            /00021101/ [Suspect]
     Indication: LYMPHOMA
     Dosage: 200 MG SOLUTION
     Route: 042
     Dates: start: 20080508, end: 20080509
  8. ENDOXAN                            /00021101/ [Suspect]
     Dosage: 200 MG SOLUTION
     Route: 042
     Dates: start: 20080515, end: 20080517
  9. ONCOVIN [Suspect]
     Indication: LYMPHOMA
     Dosage: 1.5 MG SOLUTION
     Route: 042
     Dates: start: 20080512, end: 20080512
  10. MEROPEN                            /01250501/ [Concomitant]
     Indication: SEPSIS
     Dosage: 1000 MG, UNK
     Route: 042
     Dates: start: 20080609, end: 20080620
  11. TARGOCID [Concomitant]
     Indication: SEPSIS
     Dosage: 500 MG SOLUTION
     Route: 042
     Dates: start: 20080612, end: 20080618
  12. TARGOCID [Concomitant]
     Dosage: 400 MG SOLUTION
     Route: 042
     Dates: start: 20080625, end: 20080628
  13. MODACIN [Concomitant]
     Indication: SEPSIS
     Dosage: 2000 MG SOLUTION
     Route: 042
     Dates: start: 20080620, end: 20080622

REACTIONS (3)
  - LYMPHOMA [None]
  - PLATELET COUNT DECREASED [None]
  - THROMBOCYTOPENIA [None]
